FAERS Safety Report 6941233-X (Version None)
Quarter: 2010Q3

REPORT INFORMATION
  Report Type: 
  Country: None (occurrence: None)
  Receive Date: 20100825
  Receipt Date: 20100712
  Transmission Date: 20110219
  Serious: No
  Sender: FDA-Public Use
  Company Number: US-BRISTOL-MYERS SQUIBB COMPANY-15188055

PATIENT
  Sex: Female

DRUGS (4)
  1. ONGLYZA [Suspect]
  2. GLYBURIDE AND METFORMIN HYDROCHLORIDE [Concomitant]
  3. LISINOPRIL [Concomitant]
     Indication: HYPERTENSION
  4. METFORMIN HCL [Concomitant]

REACTIONS (1)
  - PERSONALITY CHANGE [None]
